FAERS Safety Report 5061338-0 (Version None)
Quarter: 2006Q3

REPORT INFORMATION
  Report Type: 
  Country: None (occurrence: None)
  Receive Date: 20060725
  Receipt Date: 20060703
  Transmission Date: 20061208
  Serious: Yes (Hospitalization)
  Sender: FDA-Public Use
  Company Number: JP-NOVOPROD-254709

PATIENT
  Age: 65 Year
  Sex: Male

DRUGS (14)
  1. BASEN [Concomitant]
     Indication: INSULIN-REQUIRING TYPE II DIABETES MELLITUS
     Dosage: .9 MG, QD
     Route: 048
     Dates: start: 20030101
  2. NOVORAPID 30 MIX CHU FLEXPEN [Suspect]
     Indication: INSULIN-REQUIRING TYPE II DIABETES MELLITUS
     Dosage: 18-26 IU
     Route: 058
     Dates: start: 20050427, end: 20060523
  3. NOVORAPID CHU FLEXPEN [Suspect]
     Indication: INSULIN-REQUIRING TYPE II DIABETES MELLITUS
     Dosage: 12-20 IU, QD
     Route: 058
     Dates: start: 20050419, end: 20050426
  4. NOVORAPID CHU FLEXPEN [Suspect]
     Dosage: 26-30 IU, QD
     Dates: start: 20060524, end: 20060622
  5. NOVOLIN N [Suspect]
     Indication: INSULIN-REQUIRING TYPE II DIABETES MELLITUS
     Dosage: 6 IU, UNK
     Route: 058
     Dates: start: 20050419, end: 20050426
  6. NOVOLIN N [Suspect]
     Route: 058
     Dates: start: 20060524, end: 20060529
  7. SELBEX [Concomitant]
     Indication: GASTRITIS
     Dosage: 100 MG, QD
     Route: 048
     Dates: start: 20030101
  8. AMLODIN [Concomitant]
     Indication: HYPERTENSION
     Dosage: 5 MG, QD
     Route: 048
     Dates: start: 20030101
  9. ASPIRIN [Concomitant]
     Indication: TRANSIENT ISCHAEMIC ATTACK
     Dosage: 100 MG, QD
     Route: 048
     Dates: start: 20030101
  10. MEVALOTIN [Concomitant]
     Indication: HYPERLIPIDAEMIA
     Dosage: 10 MG, QD
     Route: 048
     Dates: start: 20030101
  11. DEPAS [Concomitant]
     Indication: TENSION HEADACHE
     Dosage: .5 MG, QD
     Route: 048
     Dates: start: 20030101
  12. MYONAL                             /00287502/ [Concomitant]
     Indication: TENSION HEADACHE
     Dosage: 50 MG, QD
     Route: 048
     Dates: start: 20050421
  13. SALAZOPYRIN [Concomitant]
     Indication: CROHN'S DISEASE
     Dosage: 1000 MG, QD
     Route: 048
  14. CYANOCOBALAMIN [Concomitant]
     Indication: LUMBAR SPINAL STENOSIS
     Dosage: 1500 MG, QD
     Route: 048
     Dates: start: 20060216

REACTIONS (2)
  - ANTI-INSULIN ANTIBODY POSITIVE [None]
  - BLOOD GLUCOSE FLUCTUATION [None]
